FAERS Safety Report 5942104-8 (Version None)
Quarter: 2008Q4

REPORT INFORMATION
  Report Type: 
  Country: None (occurrence: None)
  Receive Date: 20081105
  Receipt Date: 20080805
  Transmission Date: 20090506
  Serious: Yes (Other)
  Sender: FDA-Public Use
  Company Number: AU-JNJCH-2008021065

PATIENT
  Sex: Female

DRUGS (1)
  1. DYMADON [Suspect]
     Indication: DYSMENORRHOEA
     Dosage: TEXT:UNSPECIFIED
     Route: 065

REACTIONS (4)
  - DIZZINESS [None]
  - DYSPNOEA [None]
  - FLUSHING [None]
  - VOMITING [None]
